FAERS Safety Report 5819288-5 (Version None)
Quarter: 2008Q3

REPORT INFORMATION
  Report Type: 
  Country: None (occurrence: None)
  Receive Date: 20080718
  Receipt Date: 20080707
  Transmission Date: 20090109
  Serious: Yes (Hospitalization)
  Sender: FDA-Public Use
  Company Number: OSCN-NO-0807S-0447

PATIENT
  Age: 64 Year
  Sex: Male

DRUGS (12)
  1. OMNISCAN [Suspect]
     Indication: BRONCHIAL CARCINOMA
     Dosage: 20 ML, SINGLE DOSE, I.V.
     Route: 042
     Dates: start: 20050419, end: 20050419
  2. ATACAND [Concomitant]
  3. PREDNISONE (CORTANCYL) [Concomitant]
  4. LASIX [Concomitant]
  5. AMLODIPINE BESYLATE [Concomitant]
  6. ATORVASTATIN (TAHOR) [Concomitant]
  7. ESOMEPRAZOLE (INEXIUM) [Concomitant]
  8. ALLOPURINOL [Concomitant]
  9. BUFLOMEDIL [Concomitant]
  10. POTASSIUM CHLORIDE [Concomitant]
  11. ACETYLSALICYLATE LYSINE (KARDEGIC) [Concomitant]
  12. TRIMETAZIDINE HYDROCHLORIDE (VASATREL) [Concomitant]

REACTIONS (1)
  - NEPHROGENIC SYSTEMIC FIBROSIS [None]
